FAERS Safety Report 15851868 (Version 4)
Quarter: 2019Q3

REPORT INFORMATION
  Report Type: Spontaneous
  Country: US (occurrence: US)
  Receive Date: 20190122
  Receipt Date: 20190819
  Transmission Date: 20191004
  Serious: Yes (Hospitalization)
  Sender: FDA-Public Use
  Company Number: US-EMD SERONO-7006674

PATIENT
  Age: 42 Year
  Sex: Male

DRUGS (1)
  1. REBIF [Suspect]
     Active Substance: INTERFERON BETA-1A
     Indication: MULTIPLE SCLEROSIS
     Route: 058
     Dates: start: 20090218

REACTIONS (9)
  - Influenza [Recovering/Resolving]
  - Memory impairment [Unknown]
  - Fall [Unknown]
  - Face injury [Unknown]
  - Disturbance in attention [Not Recovered/Not Resolved]
  - Confusional state [Unknown]
  - Seizure [Not Recovered/Not Resolved]
  - Pain [Not Recovered/Not Resolved]
  - Skin laceration [Unknown]

NARRATIVE: CASE EVENT DATE: 201005
